FAERS Safety Report 22979548 (Version 2)
Quarter: 2023Q4

REPORT INFORMATION
  Report Type: Spontaneous
  Country: US (occurrence: US)
  Receive Date: 20230925
  Receipt Date: 20231002
  Transmission Date: 20240109
  Serious: Yes (Hospitalization)
  Sender: FDA-Public Use
  Company Number: US-RIGEL Pharmaceuticals, INC-2023FOS000990

PATIENT
  Age: 34 Year
  Sex: Female

DRUGS (1)
  1. TAVALISSE [Suspect]
     Active Substance: FOSTAMATINIB
     Indication: Thrombocytopenia
     Dosage: 100 MG, BID
     Route: 065
     Dates: start: 202308

REACTIONS (8)
  - Epistaxis [Recovered/Resolved]
  - Platelet count [Recovering/Resolving]
  - Headache [Recovered/Resolved]
  - Asthenia [Unknown]
  - Oral disorder [Unknown]
  - Off label use [Unknown]
  - Fatigue [Unknown]
  - Rash [Unknown]

NARRATIVE: CASE EVENT DATE: 20230801
